FAERS Safety Report 9448688 (Version 1)
Quarter: 2013Q3

REPORT INFORMATION
  Report Type: Spontaneous
  Country: US (occurrence: US)
  Receive Date: 20130808
  Receipt Date: 20130808
  Transmission Date: 20140515
  Serious: No
  Sender: FDA-Public Use
  Company Number: US-009507513-1308USA003592

PATIENT
  Sex: Male

DRUGS (2)
  1. LOTRIMIN AF ATHLETE^S FOOT [Suspect]
     Indication: FUNGAL INFECTION
     Dosage: UNK, UNKNOWN
     Route: 048
  2. LOTRIMIN AF ATHLETE^S FOOT [Suspect]
     Indication: MEDICAL OBSERVATION

REACTIONS (3)
  - Penile swelling [Not Recovered/Not Resolved]
  - Penile erythema [Not Recovered/Not Resolved]
  - Off label use [Not Recovered/Not Resolved]
